FAERS Safety Report 6674266-1 (Version None)
Quarter: 2010Q2

REPORT INFORMATION
  Report Type: 
  Country: None (occurrence: None)
  Receive Date: 20100409
  Receipt Date: 20100330
  Transmission Date: 20101027
  Serious: Yes (Hospitalization, Other)
  Sender: FDA-Public Use
  Company Number: CN-JNJFOC-20100400615

PATIENT
  Age: 33 Year
  Sex: Female
  Weight: 65 kg

DRUGS (6)
  1. RISPERDAL [Suspect]
     Indication: SCHIZOPHRENIA
     Route: 048
  2. RISPERDAL [Suspect]
     Route: 048
  3. RISPERDAL [Suspect]
     Route: 048
  4. RISPERDAL [Suspect]
     Route: 048
  5. VENLAFAXINE HYDROCHLORIDE [Suspect]
     Indication: DRUG USE FOR UNKNOWN INDICATION
     Route: 065
  6. VENLAFAXINE HYDROCHLORIDE [Suspect]
     Route: 065

REACTIONS (5)
  - BLOOD PROLACTIN INCREASED [None]
  - DEPRESSION [None]
  - MENSTRUAL DISORDER [None]
  - SOMNOLENCE [None]
  - UPPER AIRWAY OBSTRUCTION [None]
